FAERS Safety Report 6971458-9 (Version None)
Quarter: 2010Q3

REPORT INFORMATION
  Report Type: 
  Country: None (occurrence: None)
  Receive Date: 20100908
  Receipt Date: 20100827
  Transmission Date: 20110219
  Serious: Yes (Other)
  Sender: FDA-Public Use
  Company Number: JP-PFIZER INC-2010100530

PATIENT
  Age: 63 Year
  Sex: Female

DRUGS (8)
  1. AZULFIDINE [Suspect]
     Dosage: 500 MG 2X/DAY EVERY OTHER DAY
     Route: 048
     Dates: start: 20100401, end: 20100810
  2. MONTELUKAST SODIUM [Concomitant]
     Dosage: UNK
  3. SALMETEROL XINAFOATE [Concomitant]
     Dosage: UNK
  4. EPINASTINE HYDROCHLORIDE [Concomitant]
     Dosage: UNK
  5. ERYTHROCIN LACTOBIONATE [Concomitant]
     Dosage: UNK
     Route: 048
  6. CLEANAL [Concomitant]
     Dosage: UNK
  7. PANTOSIN [Concomitant]
     Dosage: UNK
  8. MAGNESIUM OXIDE [Concomitant]
     Dosage: UNK

REACTIONS (1)
  - ENTEROCOLITIS [None]
